FAERS Safety Report 15261171 (Version 1)
Quarter: 2018Q3

REPORT INFORMATION
  Report Type: Spontaneous
  Country: DE (occurrence: DE)
  Receive Date: 20180809
  Receipt Date: 20180809
  Transmission Date: 20181010
  Serious: Yes (Other)
  Sender: FDA-Public Use
  Company Number: DE-BAUSCH-BL-2018-021513

PATIENT
  Age: 34 Year
  Sex: Female
  Weight: 100 kg

DRUGS (3)
  1. AZATHIOPRINE. [Suspect]
     Active Substance: AZATHIOPRINE
     Indication: RHEUMATOID ARTHRITIS
     Dosage: DURING 0.0 ? 29.4. GESTATIONAL WEEK (FIRST TRIMESTER)
     Route: 048
     Dates: start: 20170212, end: 20170907
  2. PREDNISOLON [Suspect]
     Active Substance: PREDNISOLONE
     Indication: RHEUMATOID ARTHRITIS
     Dosage: DURING 0 ? 29.4. GESTATIONAL WEEK (FIRST TRIMESTER)
     Route: 048
     Dates: start: 20170212, end: 20170907
  3. L?THYROXIN [Concomitant]
     Active Substance: LEVOTHYROXINE SODIUM
     Indication: HYPOTHYROIDISM
     Dosage: LONG TERM EXPOSURE
     Route: 048

REACTIONS (1)
  - Gestational diabetes [Recovered/Resolved]
